FAERS Safety Report 6519187 (Version 3)
Quarter: 2013Q1

REPORT INFORMATION
  Report Type: Spontaneous
  Country: FR (occurrence: FR)
  Receive Date: 20080104
  Receipt Date: 20130211
  Transmission Date: 20140127
  Serious: Yes (Hospitalization, Other)
  Sender: FDA-Public Use
  Company Number: FR-RB-008863-08

PATIENT
  Age: 35 Year
  Sex: Female

DRUGS (3)
  1. SUBUTEX [Suspect]
     Indication: DRUG THERAPY
     Route: 060
     Dates: start: 1998, end: 2007
  2. SUBUTEX [Suspect]
     Route: 060
     Dates: start: 2007
  3. XANAX [Suspect]
     Indication: PRODUCT USED FOR UNKNOWN INDICATION
     Dosage: DOSAGE DETAILS UNKNOWN
     Route: 065
     Dates: start: 2005

REACTIONS (4)
  - Stillbirth [Recovered/Resolved]
  - Retroplacental haematoma [Recovered/Resolved]
  - Exposure during pregnancy [Recovered/Resolved]
  - Foetal growth restriction [Recovered/Resolved]
